FAERS Safety Report 8619006 (Version 4)
Quarter: 2016Q1

REPORT INFORMATION
  Report Type: Spontaneous
  Country: DE (occurrence: DE)
  Receive Date: 20120618
  Receipt Date: 20160105
  Transmission Date: 20160526
  Serious: Yes (Other)
  Sender: FDA-Public Use
  Company Number: PHHY2012DE050768

PATIENT
  Sex: Male

DRUGS (2)
  1. SANDOSTATIN LAR DEPOT [Suspect]
     Active Substance: OCTREOTIDE ACETATE
     Dosage: UNK
     Route: 065
     Dates: start: 2012
  2. SANDOSTATIN LAR DEPOT [Suspect]
     Active Substance: OCTREOTIDE ACETATE
     Indication: NEUROENDOCRINE TUMOUR
     Dosage: UNK
     Route: 065
     Dates: start: 2005, end: 2008

REACTIONS (13)
  - Diarrhoea [Recovered/Resolved]
  - Blood chromogranin A increased [Unknown]
  - Diarrhoea [Unknown]
  - Metastasis [Unknown]
  - Malignant neoplasm progression [Unknown]
  - Gastrooesophageal reflux disease [Not Recovered/Not Resolved]
  - Blood glucose abnormal [Unknown]
  - Noninfective gingivitis [Unknown]
  - Pancreatic neoplasm [Unknown]
  - Drug intolerance [Unknown]
  - Vomiting [Not Recovered/Not Resolved]
  - Pyrexia [Not Recovered/Not Resolved]
  - Gingival bleeding [Unknown]

NARRATIVE: CASE EVENT DATE: 201502
